FAERS Safety Report 9187025 (Version 1)
Quarter: 2013Q1

REPORT INFORMATION
  Report Type: Spontaneous
  Country: FR (occurrence: FR)
  Receive Date: 20130325
  Receipt Date: 20130325
  Transmission Date: 20140127
  Serious: Yes (Hospitalization)
  Sender: FDA-Public Use
  Company Number: FR-PFIZER INC-2013090072

PATIENT
  Age: 58 Year
  Sex: Female

DRUGS (4)
  1. DALACINE [Suspect]
     Indication: INFECTION
     Dosage: UNK
     Dates: start: 20130122, end: 20130129
  2. CELLCEPT [Suspect]
     Dosage: UNK
     Dates: end: 20130129
  3. FLAGYL [Concomitant]
     Indication: INFECTION
     Dosage: UNK
     Dates: start: 20130122
  4. CORTISONE [Concomitant]

REACTIONS (2)
  - Neutropenia [Unknown]
  - Pyrexia [Unknown]
